FAERS Safety Report 6203544-5 (Version None)
Quarter: 2009Q2

REPORT INFORMATION
  Report Type: 
  Country: None (occurrence: None)
  Receive Date: 20090522
  Receipt Date: 20090522
  Transmission Date: 20091009
  Serious: Yes (Other)
  Sender: FDA-Public Use
  Company Number: None

PATIENT
  Age: 32 Year
  Sex: Female
  Weight: 51.2565 kg

DRUGS (1)
  1. CLARITIN-D 24 HOUR [Suspect]
     Indication: MULTIPLE ALLERGIES
     Dosage: 24 HOUR DOSAGE 1 PIL
     Dates: start: 20090520, end: 20090520

REACTIONS (4)
  - FEAR [None]
  - HEART RATE INCREASED [None]
  - INSOMNIA [None]
  - PRODUCT LABEL ISSUE [None]
